FAERS Safety Report 9717640 (Version 2)
Quarter: 2013Q4

REPORT INFORMATION
  Report Type: Spontaneous
  Country: US (occurrence: None)
  Receive Date: 20131122
  Receipt Date: 20131212
  Transmission Date: 20140711
  Serious: Yes (Other)
  Sender: FDA-Public Use
  Company Number: 2013-US-003158

PATIENT
  Age: 40 Year
  Sex: Female
  Weight: 70.3 kg

DRUGS (6)
  1. XYREM [Suspect]
     Indication: CATAPLEXY
     Route: 048
     Dates: start: 200708, end: 2011
  2. XYREM [Suspect]
     Indication: NARCOLEPSY
     Route: 048
     Dates: start: 200708, end: 2011
  3. GABAPENTIN (GABAPENTIN) [Concomitant]
  4. FLEXERIL (CYCLOBENZAPRINE HYDROCHLORIDE) [Concomitant]
  5. DEXTROAMPHETAMINE (DEXAMFETAMINE) [Concomitant]
  6. EFFEXIR (VENLAFAXINE HYDROCHLORIDE) [Concomitant]

REACTIONS (15)
  - Foot fracture [None]
  - Facial bones fracture [None]
  - Depression [None]
  - Concussion [None]
  - Middle insomnia [None]
  - Poor quality sleep [None]
  - Fall [None]
  - Disturbance in attention [None]
  - Anxiety [None]
  - Somnambulism [None]
  - Drug dose omission [None]
  - Tooth fracture [None]
  - Endodontic procedure [None]
  - Feeling abnormal [None]
  - Anxiety [None]
